FAERS Safety Report 6316183-2 (Version None)
Quarter: 2009Q3

REPORT INFORMATION
  Report Type: 
  Country: None (occurrence: None)
  Receive Date: 20090820
  Receipt Date: 20090810
  Transmission Date: 20100115
  Serious: Yes (Other)
  Sender: FDA-Public Use
  Company Number: US-MYLANLABS-2009S1014158

PATIENT
  Age: 57 Year
  Sex: Male
  Weight: 81.65 kg

DRUGS (4)
  1. DIAZEPAM [Suspect]
     Indication: MYOCLONIC EPILEPSY
     Route: 048
     Dates: start: 20090515, end: 20090515
  2. DIAZEPAM [Suspect]
     Route: 048
     Dates: start: 20090516, end: 20090601
  3. CLONAZEPAM [Suspect]
     Indication: MYOCLONIC EPILEPSY
     Route: 048
     Dates: start: 20090601
  4. FLUOXETINE [Concomitant]
     Indication: DEPRESSION
     Dosage: TAKEN FOR DEPRESSION AND OCD
     Dates: start: 19900101

REACTIONS (5)
  - CLUMSINESS [None]
  - DIZZINESS [None]
  - DRUG INEFFECTIVE [None]
  - FEELING ABNORMAL [None]
  - MYOCLONIC EPILEPSY [None]
